FAERS Safety Report 9373985 (Version 1)
Quarter: 2013Q2

REPORT INFORMATION
  Report Type: Spontaneous
  Country: US (occurrence: None)
  Receive Date: 20130627
  Receipt Date: 20130627
  Transmission Date: 20140414
  Serious: Yes (Hospitalization)
  Sender: FDA-Public Use
  Company Number: None

PATIENT
  Age: 44 Year
  Sex: Female
  Weight: 82.6 kg

DRUGS (1)
  1. METHIMAZOLE [Suspect]
     Indication: BASEDOW^S DISEASE
     Route: 048
     Dates: start: 20130506, end: 20130621

REACTIONS (4)
  - Oropharyngeal pain [None]
  - Neutropenia [None]
  - Agranulocytosis [None]
  - Body temperature increased [None]
